FAERS Safety Report 9906592 (Version 1)
Quarter: 2014Q1

REPORT INFORMATION
  Report Type: Spontaneous
  Country: GR (occurrence: GR)
  Receive Date: 20140218
  Receipt Date: 20140218
  Transmission Date: 20141002
  Serious: Yes (Death)
  Sender: FDA-Public Use
  Company Number: GR-ABBVIE-14P-066-1201690-00

PATIENT
  Sex: Female

DRUGS (4)
  1. HUMIRA [Suspect]
     Indication: RHEUMATOID ARTHRITIS
     Route: 058
     Dates: start: 20111005, end: 20140120
  2. PREZOLON [Concomitant]
     Indication: RHEUMATOID ARTHRITIS
     Dates: start: 2011, end: 20140120
  3. METHOTREXATE [Concomitant]
     Indication: RHEUMATOID ARTHRITIS
     Dosage: 10MG/WEEK
     Dates: start: 2011, end: 20140120
  4. FOLIC ACID [Concomitant]
     Indication: DRUG THERAPY ENHANCEMENT
     Dosage: 5MG/WEEK
     Dates: start: 2011, end: 20140120

REACTIONS (1)
  - Cardiac arrest [Fatal]
